FAERS Safety Report 6409444-X (Version None)
Quarter: 2009Q4

REPORT INFORMATION
  Report Type: 
  Country: None (occurrence: None)
  Receive Date: 20091019
  Receipt Date: 20091019
  Transmission Date: 20100525
  Serious: Yes (Other)
  Sender: FDA-Public Use
  Company Number: None

PATIENT
  Age: 65 Year
  Sex: Female
  Weight: 65.7716 kg

DRUGS (4)
  1. ENBREL [Suspect]
     Indication: PSORIASIS
     Dosage: ONE SHOT ONE TIME IM
     Route: 030
     Dates: start: 20090923, end: 20090930
  2. ENBREL [Suspect]
     Indication: PSORIATIC ARTHROPATHY
     Dosage: ONE SHOT ONE TIME IM
     Route: 030
     Dates: start: 20090923, end: 20090930
  3. HUMIRA [Suspect]
     Indication: PSORIASIS
     Dosage: TWO SHOTS ONE TIME IM
     Route: 030
     Dates: start: 20091011, end: 20091018
  4. HUMIRA [Suspect]
     Indication: PSORIATIC ARTHROPATHY
     Dosage: TWO SHOTS ONE TIME IM
     Route: 030
     Dates: start: 20091011, end: 20091018

REACTIONS (5)
  - ABDOMINAL PAIN UPPER [None]
  - MALAISE [None]
  - NAUSEA [None]
  - PRURITUS [None]
  - SKIN EXFOLIATION [None]
